FAERS Safety Report 16435307 (Version 2)
Quarter: 2019Q2

REPORT INFORMATION
  Report Type: Spontaneous
  Country: NZ (occurrence: NZ)
  Receive Date: 20190614
  Receipt Date: 20190621
  Transmission Date: 20190711
  Serious: Yes (Other)
  Sender: FDA-Public Use
  Company Number: NZ-MYLANLABS-2019M1054875

PATIENT
  Age: 60 Year
  Sex: Male

DRUGS (2)
  1. TICAGRELOR. [Interacting]
     Active Substance: TICAGRELOR
     Indication: MYOCARDIAL INFARCTION
     Dosage: UNK
  2. ATORVASTATIN [Suspect]
     Active Substance: ATORVASTATIN
     Indication: MYOCARDIAL INFARCTION
     Dosage: UNK

REACTIONS (4)
  - Chromaturia [Recovered/Resolved]
  - Jaundice [Recovered/Resolved]
  - Drug interaction [Recovered/Resolved]
  - Liver function test abnormal [Recovered/Resolved]
